FAERS Safety Report 14340882 (Version 1)
Quarter: 2018Q1

REPORT INFORMATION
  Report Type: Other
  Country: GB (occurrence: GB)
  Receive Date: 20180102
  Receipt Date: 20180102
  Transmission Date: 20180509
  Serious: Yes (Other)
  Sender: FDA-Public Use
  Company Number: GB-LUPIN PHARMACEUTICALS INC.-2017-07552

PATIENT
  Age: 45 Year
  Sex: Male

DRUGS (4)
  1. SERTRALINE [Suspect]
     Active Substance: SERTRALINE HYDROCHLORIDE
     Indication: DEPRESSION
     Dosage: 50 MG, UNK
     Route: 065
  2. AMITRIPTYLINE [Suspect]
     Active Substance: AMITRIPTYLINE
     Indication: PRODUCT USED FOR UNKNOWN INDICATION
     Dosage: UNK
     Route: 065
  3. SERTRALINE [Suspect]
     Active Substance: SERTRALINE HYDROCHLORIDE
     Dosage: 100 MG, UNK
     Route: 065
  4. MIRTAZAPINE. [Suspect]
     Active Substance: MIRTAZAPINE
     Indication: PRODUCT USED FOR UNKNOWN INDICATION
     Dosage: UNK
     Route: 065

REACTIONS (15)
  - Serotonin syndrome [Unknown]
  - Hypomania [Unknown]
  - Self-injurious ideation [Unknown]
  - Aggression [Unknown]
  - Obsessive thoughts [Unknown]
  - Hallucination [Unknown]
  - Grandiosity [Unknown]
  - Fear [Unknown]
  - Overconfidence [Unknown]
  - Paranoia [Unknown]
  - Psychopathic personality [Unknown]
  - Impatience [Unknown]
  - Abnormal behaviour [Unknown]
  - Staring [Unknown]
  - Disturbance in attention [Unknown]
